FAERS Safety Report 10341427 (Version 1)
Quarter: 2014Q3

REPORT INFORMATION
  Report Type: Report from Study
  Country: US (occurrence: US)
  Receive Date: 20140725
  Receipt Date: 20140725
  Transmission Date: 20150326
  Serious: Yes (Hospitalization, Other)
  Sender: FDA-Public Use
  Company Number: US-BIOGENIDEC-2014BI072561

PATIENT
  Age: 72 Year
  Sex: Female

DRUGS (4)
  1. AVONEX [Suspect]
     Active Substance: INTERFERON BETA-1A
     Indication: MULTIPLE SCLEROSIS
     Route: 030
     Dates: start: 20020223, end: 20131208
  2. AVONEX [Suspect]
     Active Substance: INTERFERON BETA-1A
     Indication: MULTIPLE SCLEROSIS
     Route: 030
     Dates: start: 201312, end: 201403
  3. AVONEX [Suspect]
     Active Substance: INTERFERON BETA-1A
     Indication: MULTIPLE SCLEROSIS
     Route: 030
     Dates: start: 201407
  4. AVONEX [Suspect]
     Active Substance: INTERFERON BETA-1A
     Indication: MULTIPLE SCLEROSIS
     Route: 030
     Dates: start: 201403, end: 201407

REACTIONS (8)
  - Musculoskeletal disorder [Recovered/Resolved]
  - Septic shock [Recovered/Resolved]
  - Renal failure [Recovered/Resolved]
  - Atrial fibrillation [Recovered/Resolved]
  - Memory impairment [Recovered/Resolved]
  - Headache [Recovered/Resolved]
  - Apparent death [Recovered/Resolved]
  - Intestinal perforation [Recovered/Resolved]

NARRATIVE: CASE EVENT DATE: 2002
